FAERS Safety Report 18400505 (Version 1)
Quarter: 2020Q4

REPORT INFORMATION
  Report Type: Spontaneous
  Country: GB (occurrence: GB)
  Receive Date: 20201019
  Receipt Date: 20201019
  Transmission Date: 20210114
  Serious: Yes (Life-Threatening)
  Sender: FDA-Public Use
  Company Number: GB-ASTRAZENECA-2020SF33094

PATIENT
  Age: 66 Year
  Sex: Male
  Weight: 58.3 kg

DRUGS (9)
  1. OMEPRAZOLE. [Suspect]
     Active Substance: OMEPRAZOLE
     Dosage: 40.0MG UNKNOWN
     Route: 048
     Dates: end: 20200921
  2. TRELEGY ELLIPTA [Concomitant]
     Active Substance: FLUTICASONE FUROATE\UMECLIDINIUM BROMIDE\VILANTEROL TRIFENATATE
  3. QUININE SULFATE. [Concomitant]
     Active Substance: QUININE SULFATE
  4. AMOXICILLIN. [Concomitant]
     Active Substance: AMOXICILLIN
  5. THIAMINE. [Concomitant]
     Active Substance: THIAMINE
  6. AMITRIPTYLINE [Concomitant]
     Active Substance: AMITRIPTYLINE
  7. SALBUTAMOL [Concomitant]
     Active Substance: ALBUTEROL
  8. CLARITHROMYCIN. [Concomitant]
     Active Substance: CLARITHROMYCIN
  9. SERTRALINE [Concomitant]
     Active Substance: SERTRALINE HYDROCHLORIDE

REACTIONS (2)
  - Atrial fibrillation [Unknown]
  - Hypomagnesaemia [Recovered/Resolved with Sequelae]
